FAERS Safety Report 9726395 (Version 1)
Quarter: 2013Q4

REPORT INFORMATION
  Report Type: Spontaneous
  Country: GB (occurrence: None)
  Receive Date: 20131129
  Receipt Date: 20131129
  Transmission Date: 20140711
  Serious: Yes (Life-Threatening, Hospitalization)
  Sender: FDA-Public Use
  Company Number: AUR-APL-2013-09800

PATIENT
  Age: 83 Year
  Sex: Female

DRUGS (6)
  1. CEFALEXIN [Suspect]
     Indication: URINARY TRACT INFECTION
     Dosage: 1500 MG (500 MG, 3 IN 1 D), ORAL
     Route: 048
     Dates: start: 20131025, end: 20131031
  2. BISOPROLOL [Concomitant]
  3. CO-CODAMOL [Concomitant]
  4. CYCLIZINE [Concomitant]
  5. FULTIUM [Concomitant]
  6. METOCLOPRAMIDE [Concomitant]

REACTIONS (1)
  - Jaundice cholestatic [None]
